FAERS Safety Report 25974096 (Version 1)
Quarter: 2025Q4

REPORT INFORMATION
  Report Type: Spontaneous
  Country: CN (occurrence: CN)
  Receive Date: 20251029
  Receipt Date: 20251029
  Transmission Date: 20260118
  Serious: Yes (Other)
  Sender: MERCK SHARP & DOHME LLC
  Company Number: CN-009507513-2343769

PATIENT
  Age: 34 Year
  Sex: Female

DRUGS (2)
  1. TEMOZOLOMIDE [Suspect]
     Active Substance: TEMOZOLOMIDE
     Indication: Glioblastoma multiforme
     Dosage: TIME INTERVAL: CYCLICAL: CYCLES 2-6: 200 MG/M2/DAY, ADMINISTERED ON DAYS 1-5, FOLLOWED BY 23?DAYS...
     Route: 048
     Dates: start: 2024, end: 20240524
  2. TEMOZOLOMIDE [Suspect]
     Active Substance: TEMOZOLOMIDE
     Indication: Glioblastoma multiforme
     Dosage: TIME INTERVAL: CYCLICAL: CYCLE 1: 150 MG/M2/DAY, ADMINISTERED ON DAYS 1-5, FOLLOWED BY 23 DAYS OF...
     Route: 048
     Dates: start: 20240105, end: 2024

REACTIONS (12)
  - Malignant neoplasm progression [Unknown]
  - Amnesia [Unknown]
  - Nausea [Unknown]
  - Decreased activity [Not Recovered/Not Resolved]
  - Hyporesponsive to stimuli [Not Recovered/Not Resolved]
  - Vomiting [Unknown]
  - Product use complaint [Unknown]
  - Muscular weakness [Not Recovered/Not Resolved]
  - Memory impairment [Not Recovered/Not Resolved]
  - Headache [Recovering/Resolving]
  - Dizziness [Unknown]
  - Hypokinesia [Unknown]

NARRATIVE: CASE EVENT DATE: 20240101
